FAERS Safety Report 9830530 (Version 1)
Quarter: 2014Q1

REPORT INFORMATION
  Report Type: Spontaneous
  Country: GB (occurrence: GB)
  Receive Date: 20140120
  Receipt Date: 20140120
  Transmission Date: 20141002
  Serious: Yes (Disabling)
  Sender: FDA-Public Use
  Company Number: GB-NOVOPROD-397460

PATIENT
  Age: 67 Year
  Sex: Male

DRUGS (12)
  1. VICTOZA [Suspect]
     Indication: PRODUCT USED FOR UNKNOWN INDICATION
     Dosage: UNK
     Route: 058
     Dates: start: 20131206
  2. AMITRIPTYLINE [Concomitant]
     Dosage: UNK
     Route: 065
  3. ASPIRIN [Concomitant]
     Dosage: UNK
     Route: 065
  4. ATORVASTATIN [Concomitant]
     Dosage: UNK
     Route: 065
  5. EZETROL [Concomitant]
     Dosage: UNK
     Route: 065
  6. GLICLAZIDE [Concomitant]
     Dosage: UNK
     Route: 065
  7. LANSOPRAZOLE [Concomitant]
     Dosage: UNK
     Route: 065
  8. LERCANIDIPINE [Concomitant]
     Dosage: UNK
     Route: 065
  9. METFORMIN [Concomitant]
     Dosage: UNK
     Route: 065
  10. PIOGLITAZONE [Concomitant]
     Dosage: UNK
     Route: 065
  11. TAMSULOSIN [Concomitant]
     Dosage: UNK
     Route: 065
  12. VERAPAMIL [Concomitant]
     Dosage: UNK
     Route: 065

REACTIONS (2)
  - Diarrhoea [Recovered/Resolved with Sequelae]
  - Malaise [Unknown]
